FAERS Safety Report 4689034-X (Version None)
Quarter: 2005Q2

REPORT INFORMATION
  Report Type: 
  Country: None (occurrence: None)
  Receive Date: 20050613
  Receipt Date: 20050603
  Transmission Date: 20051028
  Serious: Yes (Disabling)
  Sender: FDA-Public Use
  Company Number: US-MERCK-0506USA01005

PATIENT
  Age: 39 Year
  Sex: Male
  Weight: 100 kg

DRUGS (3)
  1. VIOXX [Suspect]
     Indication: ARTHRALGIA
     Route: 048
     Dates: start: 19991007, end: 20020624
  2. ZOCOR [Concomitant]
     Indication: HYPERLIPIDAEMIA
     Route: 048
     Dates: start: 19990101, end: 20020601
  3. ZESTRIL [Concomitant]
     Indication: HYPERTENSION
     Route: 048
     Dates: start: 19990101, end: 20020801

REACTIONS (6)
  - ACUTE CORONARY SYNDROME [None]
  - EMOTIONAL DISTRESS [None]
  - HAEMORRHOIDS [None]
  - INTERVERTEBRAL DISC DISORDER [None]
  - MYOCARDIAL INFARCTION [None]
  - RECTAL POLYP [None]
